FAERS Safety Report 11219495 (Version 1)
Quarter: 2015Q2

REPORT INFORMATION
  Report Type: Report from Study
  Country: US (occurrence: US)
  Receive Date: 20150625
  Receipt Date: 20150625
  Transmission Date: 20150821
  Serious: Yes (Other)
  Sender: FDA-Public Use
  Company Number: US-ELI_LILLY_AND_COMPANY-US201506005784

PATIENT
  Age: 64 Year
  Sex: Male

DRUGS (1)
  1. TERIPARATIDE [Suspect]
     Active Substance: TERIPARATIDE
     Indication: OSTEOPOROSIS
     Dosage: UNK, QD
     Route: 065
     Dates: start: 20150604, end: 20150604

REACTIONS (6)
  - Lethargy [Unknown]
  - Feeling abnormal [Unknown]
  - Atrial fibrillation [Unknown]
  - Dizziness [Unknown]
  - Heart rate increased [Unknown]
  - Dysuria [Unknown]

NARRATIVE: CASE EVENT DATE: 20150604
